FAERS Safety Report 9455752 (Version 1)
Quarter: 2013Q3

REPORT INFORMATION
  Report Type: Spontaneous
  Country: US (occurrence: US)
  Receive Date: 20130813
  Receipt Date: 20130813
  Transmission Date: 20140515
  Serious: No
  Sender: FDA-Public Use
  Company Number: US-BAYER-2013-095843

PATIENT
  Age: 79 Year
  Sex: Male

DRUGS (4)
  1. ALEVE TABLET [Suspect]
     Indication: ANALGESIC THERAPY
     Dosage: 1 DF, QD
     Route: 048
     Dates: start: 20130805, end: 20130806
  2. METFORMIN [Concomitant]
  3. GLYBURIDE [Concomitant]
  4. FISH OIL [Concomitant]

REACTIONS (1)
  - Gastric disorder [Not Recovered/Not Resolved]
